FAERS Safety Report 6952309-5 (Version None)
Quarter: 2010Q3

REPORT INFORMATION
  Report Type: 
  Country: None (occurrence: None)
  Receive Date: 20100829
  Receipt Date: 20100428
  Transmission Date: 20110219
  Serious: No
  Sender: FDA-Public Use
  Company Number: US-ABBOTT-10P-163-0642266-00

PATIENT
  Sex: Female

DRUGS (5)
  1. NIASPAN [Suspect]
     Indication: BLOOD CHOLESTEROL INCREASED
     Dates: start: 20100422
  2. ONE-A-DAY MULTIVITAMIN [Concomitant]
     Indication: VITAMIN SUPPLEMENTATION
  3. ASPIRIN [Concomitant]
     Indication: PROPHYLAXIS
     Dates: start: 20100426
  4. ASPIRIN [Concomitant]
     Indication: ADVERSE DRUG REACTION
  5. UNKNOWN MEDICATION [Concomitant]
     Indication: HYPERTENSION

REACTIONS (4)
  - ERYTHEMA [None]
  - FLUSHING [None]
  - PALPITATIONS [None]
  - PRURITUS [None]
